FAERS Safety Report 9473335 (Version 1)
Quarter: 2013Q3

REPORT INFORMATION
  Report Type: Spontaneous
  Country: US (occurrence: US)
  Receive Date: 20130823
  Receipt Date: 20130823
  Transmission Date: 20140515
  Serious: No
  Sender: FDA-Public Use
  Company Number: US-BRISTOL-MYERS SQUIBB COMPANY-18900480

PATIENT
  Age: 75 Year
  Sex: Male

DRUGS (1)
  1. SPRYCEL (CML) TABS 20 MG [Suspect]
     Route: 048
     Dates: start: 20120420

REACTIONS (1)
  - Abdominal discomfort [Recovered/Resolved]
